FAERS Safety Report 4456408-1 (Version None)
Quarter: 2004Q3

REPORT INFORMATION
  Report Type: 
  Country: None (occurrence: None)
  Receive Date: 20040917
  Receipt Date: 20040901
  Transmission Date: 20050211
  Serious: Yes (Hospitalization)
  Sender: FDA-Public Use
  Company Number: 172552

PATIENT
  Age: 45 Year
  Sex: Female
  Weight: 63.5036 kg

DRUGS (3)
  1. AVONEX [Suspect]
     Indication: MULTIPLE SCLEROSIS
     Dosage: 30 MCG QW; IM
     Route: 030
     Dates: start: 19960101
  2. KLONOPIN [Concomitant]
  3. TRENTAL ^ROUSSEL^ [Concomitant]

REACTIONS (9)
  - CONDITION AGGRAVATED [None]
  - DEMYELINATION [None]
  - HEAD INJURY [None]
  - MEMORY IMPAIRMENT [None]
  - MIGRAINE [None]
  - MULTIPLE SCLEROSIS [None]
  - SCAR [None]
  - VASCULAR RUPTURE [None]
  - VISION BLURRED [None]
